FAERS Safety Report 21566094 (Version 3)
Quarter: 2023Q1

REPORT INFORMATION
  Report Type: Spontaneous
  Country: US (occurrence: US)
  Receive Date: 20221108
  Receipt Date: 20230125
  Transmission Date: 20230418
  Serious: No
  Sender: FDA-Public Use
  Company Number: US-PFIZER INC-PV202200089301

PATIENT
  Age: 16 Year
  Sex: Male
  Weight: 63.5 kg

DRUGS (1)
  1. GENOTROPIN [Suspect]
     Active Substance: SOMATROPIN
     Indication: Hypopituitarism
     Dosage: 2.2 MG, DAILY
     Dates: start: 20180424

REACTIONS (1)
  - Device use error [Unknown]
